FAERS Safety Report 5997128-1 (Version None)
Quarter: 2008Q4

REPORT INFORMATION
  Report Type: 
  Country: None (occurrence: None)
  Receive Date: 20081212
  Receipt Date: 20081106
  Transmission Date: 20090506
  Serious: No
  Sender: FDA-Public Use
  Company Number: US-ABBOTT-08P-163-0486348-00

PATIENT
  Sex: Female
  Weight: 97.156 kg

DRUGS (7)
  1. HUMIRA [Suspect]
     Indication: CROHN'S DISEASE
     Route: 058
     Dates: start: 20080501
  2. MESALAMINE [Concomitant]
     Indication: CROHN'S DISEASE
     Route: 048
  3. SERTRALINE [Concomitant]
     Indication: DEPRESSION
     Route: 048
  4. DIOVAN HCT [Concomitant]
     Indication: BLOOD PRESSURE
     Route: 048
  5. NORTRIPTYLINE HCL [Concomitant]
     Indication: PAIN IN EXTREMITY
     Dosage: NIGHTLY AT BEDTIME
     Route: 048
  6. ERGOCALCIFEROL [Concomitant]
     Indication: VITAMIN SUPPLEMENTATION
  7. IRON SUPPLEMENT [Concomitant]
     Indication: MINERAL SUPPLEMENTATION
     Dosage: UNKNOWN STRENGTH
     Route: 048

REACTIONS (1)
  - FUNGAL INFECTION [None]
